FAERS Safety Report 15612977 (Version 1)
Quarter: 2018Q4

REPORT INFORMATION
  Report Type: Other
  Country: JP (occurrence: JP)
  Receive Date: 20181113
  Receipt Date: 20181113
  Transmission Date: 20190205
  Serious: Yes (Other)
  Sender: FDA-Public Use
  Company Number: JP-ALLIED PHARMA, LLC-2058781

PATIENT
  Age: 72 Year
  Sex: Male

DRUGS (4)
  1. ETHAMBUTOL [Interacting]
     Active Substance: ETHAMBUTOL HYDROCHLORIDE
     Route: 065
  2. GEFITINIB. [Interacting]
     Active Substance: GEFITINIB
     Route: 065
  3. RIFABUTIN. [Interacting]
     Active Substance: RIFABUTIN
     Route: 065
  4. CLARITHROMYCIN. [Suspect]
     Active Substance: CLARITHROMYCIN
     Indication: MYCOBACTERIUM AVIUM COMPLEX INFECTION
     Route: 065

REACTIONS (2)
  - Hyperbilirubinaemia [Unknown]
  - Drug interaction [Unknown]
